FAERS Safety Report 10913807 (Version 2)
Quarter: 2015Q2

REPORT INFORMATION
  Report Type: Spontaneous
  Country: DE (occurrence: DE)
  Receive Date: 20150313
  Receipt Date: 20150629
  Transmission Date: 20150821
  Serious: Yes (Other)
  Sender: FDA-Public Use
  Company Number: DE-TEVA-545942GER

PATIENT
  Age: 79 Year
  Sex: Male

DRUGS (4)
  1. OXAZEPAM. [Concomitant]
     Active Substance: OXAZEPAM
  2. HALOPERIDOL-GRY 5 MG TABLETTEN [Suspect]
     Active Substance: HALOPERIDOL
     Indication: PANIC ATTACK
  3. HALOPERIDOL-GRY 5 MG TABLETTEN [Suspect]
     Active Substance: HALOPERIDOL
     Indication: DELUSION
     Dosage: 5 MILLIGRAM DAILY; 5 MG /DAY OR EVEN MORE
     Route: 048
     Dates: start: 201501, end: 2015
  4. HALOPERIDOL-GRY 5 MG TABLETTEN [Suspect]
     Active Substance: HALOPERIDOL
     Indication: ANXIETY

REACTIONS (8)
  - Muscle rigidity [Recovering/Resolving]
  - Cough decreased [Recovering/Resolving]
  - Musculoskeletal stiffness [Not Recovered/Not Resolved]
  - Abasia [Recovering/Resolving]
  - Feeding disorder [Recovering/Resolving]
  - Pyrexia [Recovering/Resolving]
  - Personality change [Recovering/Resolving]
  - Hypotonia [Not Recovered/Not Resolved]
